FAERS Safety Report 4422060-4 (Version None)
Quarter: 2004Q3

REPORT INFORMATION
  Report Type: 
  Country: None (occurrence: None)
  Receive Date: 20040806
  Receipt Date: 20040715
  Transmission Date: 20050211
  Serious: Yes (Hospitalization, Other)
  Sender: FDA-Public Use
  Company Number: USA040772737

PATIENT
  Age: 76 Year
  Sex: Female

DRUGS (6)
  1. HUMULIN 70/30 [Suspect]
     Dosage: 15 U/2 DAY
     Dates: start: 19840101
  2. QUININE [Concomitant]
  3. NORVASC [Concomitant]
  4. ACCUPRIL [Concomitant]
  5. POTASSIUM [Concomitant]
  6. LASIX [Concomitant]

REACTIONS (10)
  - BLINDNESS UNILATERAL [None]
  - BLOOD GLUCOSE DECREASED [None]
  - CARDIAC FAILURE CONGESTIVE [None]
  - CATARACT [None]
  - EYE HAEMORRHAGE [None]
  - MUSCLE CRAMP [None]
  - PAIN [None]
  - RETINAL DISORDER [None]
  - SWELLING [None]
  - VISUAL ACUITY REDUCED [None]
